FAERS Safety Report 24617924 (Version 2)
Quarter: 2025Q3

REPORT INFORMATION
  Report Type: Spontaneous
  Country: US (occurrence: US)
  Receive Date: 20241114
  Receipt Date: 20250816
  Transmission Date: 20251021
  Serious: Yes (Other)
  Sender: ALEXION PHARMACEUTICALS
  Company Number: US-ASTRAZENECA-202410USA012572US

PATIENT
  Sex: Male

DRUGS (4)
  1. CRESTOR [Interacting]
     Active Substance: ROSUVASTATIN CALCIUM
     Dosage: 10 MILLIGRAM, QD
  2. METOPROLOL [Suspect]
     Active Substance: METOPROLOL
  3. VYNDAMAX [Interacting]
     Active Substance: TAFAMIDIS
     Indication: Product used for unknown indication
     Dosage: UNK, QD
  4. TAMSULOSIN [Concomitant]
     Active Substance: TAMSULOSIN

REACTIONS (6)
  - Neuropathy peripheral [Unknown]
  - Drug interaction [Unknown]
  - Drug ineffective [Unknown]
  - Muscular weakness [Unknown]
  - Tremor [Unknown]
  - Adverse event [Unknown]
